FAERS Safety Report 14946268 (Version 1)
Quarter: 2018Q2

REPORT INFORMATION
  Report Type: Spontaneous
  Country: US (occurrence: US)
  Receive Date: 20180529
  Receipt Date: 20180529
  Transmission Date: 20180711
  Serious: No
  Sender: FDA-Public Use
  Company Number: US-SA-2018SA143156

PATIENT
  Age: 78 Year
  Sex: Female

DRUGS (4)
  1. ASPIR 81 [Concomitant]
     Dosage: 81 MG
  2. LEVOTHYROXIN [Concomitant]
     Active Substance: LEVOTHYROXINE
     Dosage: 137 UG
  3. AMLODIPINE [Concomitant]
     Active Substance: AMLODIPINE BESYLATE
     Dosage: 10 MG
  4. PRALUENT [Suspect]
     Active Substance: ALIROCUMAB
     Indication: PERIPHERAL VASCULAR DISORDER
     Dosage: 75 MG, QOW
     Route: 058
     Dates: start: 20180119

REACTIONS (2)
  - Feeling abnormal [Unknown]
  - Unevaluable event [Unknown]
